FAERS Safety Report 4344628-6 (Version None)
Quarter: 2004Q1

REPORT INFORMATION
  Report Type: 
  Country: None (occurrence: None)
  Receive Date: 20040319
  Receipt Date: 20031124
  Transmission Date: 20041129
  Serious: No
  Sender: FDA-Public Use
  Company Number: US-JNJFOC-20031200033

PATIENT
  Age: 23 Year
  Sex: Female
  Weight: 71.6683 kg

DRUGS (6)
  1. ORTHO EVRA [Suspect]
     Indication: CONTRACEPTION
     Dosage: 1 DOSE(S), 3 IN 4 WEEK, TRANSDERMAL
     Route: 062
     Dates: start: 20031115
  2. ALBUTEROL [Concomitant]
  3. ALLEGRA [Concomitant]
  4. ADVAIR (SERETIDE MITE) [Concomitant]
  5. FLONASE [Concomitant]
  6. SINGULAIR [Concomitant]

REACTIONS (4)
  - ANOREXIA [None]
  - DYSPEPSIA [None]
  - FATIGUE [None]
  - HEADACHE [None]
